FAERS Safety Report 4584791-5 (Version None)
Quarter: 2005Q1

REPORT INFORMATION
  Report Type: 
  Country: None (occurrence: None)
  Receive Date: 20050214
  Receipt Date: 20050201
  Transmission Date: 20050727
  Serious: Yes (Hospitalization, Disabling, Other)
  Sender: FDA-Public Use
  Company Number: 2005024622

PATIENT
  Age: 53 Year
  Sex: Male
  Weight: 181.4388 kg

DRUGS (2)
  1. CELEBREX [Suspect]
     Indication: ARTHRITIS
     Dosage: 800 MG (400 MG, 2 IN 1 D); ORAL
     Route: 048
     Dates: start: 20020201
  2. ALL OTHER THERAPEUTIC PRODUCTS [Concomitant]

REACTIONS (5)
  - CORONARY ARTERY OCCLUSION [None]
  - DECUBITUS ULCER [None]
  - DELIRIUM [None]
  - MYOCARDIAL INFARCTION [None]
  - POSTOPERATIVE INFECTION [None]
